FAERS Safety Report 5870486-4 (Version None)
Quarter: 2008Q3

REPORT INFORMATION
  Report Type: 
  Country: None (occurrence: None)
  Receive Date: 20080904
  Receipt Date: 20071002
  Transmission Date: 20090109
  Serious: No
  Sender: FDA-Public Use
  Company Number: US-BRISTOL-MYERS SQUIBB COMPANY-13926480

PATIENT
  Age: 75 Year
  Sex: Female
  Weight: 59 kg

DRUGS (4)
  1. DEFINITY [Suspect]
     Route: 042
     Dates: start: 20071002, end: 20071002
  2. ASPIRIN [Concomitant]
  3. ZOLPIDEM [Concomitant]
  4. SODIUM CHLORIDE [Concomitant]

REACTIONS (1)
  - BACK PAIN [None]
